FAERS Safety Report 10982671 (Version 1)
Quarter: 2015Q2

REPORT INFORMATION
  Report Type: Report from Study
  Country: AU (occurrence: AU)
  Receive Date: 20150403
  Receipt Date: 20150403
  Transmission Date: 20150821
  Serious: Yes (Hospitalization, Other)
  Sender: FDA-Public Use
  Company Number: AU-BRISTOL-MYERS SQUIBB COMPANY-20025789

PATIENT
  Age: 74 Year
  Sex: Female
  Weight: 74.7 kg

DRUGS (20)
  1. IPILIMUMAB [Suspect]
     Active Substance: IPILIMUMAB
     Indication: METASTATIC MALIGNANT MELANOMA
     Route: 042
  2. PANADOL [Concomitant]
     Active Substance: ACETAMINOPHEN
     Dosage: UNK
     Dates: start: 2011
  3. NASONEX [Concomitant]
     Active Substance: MOMETASONE FUROATE
     Dosage: 4 SPRAYS
     Dates: start: 201309
  4. NIVOLUMAB [Suspect]
     Active Substance: NIVOLUMAB
     Indication: METASTATIC MALIGNANT MELANOMA
     Dosage: 3OR1MG/KG
     Route: 042
     Dates: start: 20131205
  5. FISH OIL [Concomitant]
     Active Substance: FISH OIL
     Dosage: UNK
     Dates: start: 2008
  6. DIPROSONE [Concomitant]
     Active Substance: BETAMETHASONE DIPROPIONATE
     Dosage: 1 APPLICATION
     Route: 061
     Dates: start: 20131209
  7. CARBIMAZOLE [Concomitant]
     Active Substance: CARBIMAZOLE
     Dosage: UNK
     Dates: start: 20140117
  8. MULTI VITAMIN [Concomitant]
     Active Substance: VITAMINS
     Dosage: UNK
     Dates: start: 2003
  9. IBILEX [Concomitant]
     Dosage: UNK
     Dates: start: 20131224, end: 20131231
  10. CARBIMAZOLE [Concomitant]
     Active Substance: CARBIMAZOLE
  11. LOPERAMIDE [Concomitant]
     Active Substance: LOPERAMIDE
  12. GENTAMICIN. [Concomitant]
     Active Substance: GENTAMICIN
  13. ATORVASTATIN [Concomitant]
     Active Substance: ATORVASTATIN
     Dosage: UNK
     Dates: start: 2009
  14. ATACAND PLUS [Concomitant]
     Active Substance: CANDESARTAN CILEXETIL\HYDROCHLOROTHIAZIDE
     Dosage: UNK
     Dates: start: 2009
  15. ALENDRONATE SODIUM + COLECALCIFEROL [Concomitant]
     Dosage: UNK
     Dates: start: 2007
  16. PARACETAMOL [Concomitant]
     Active Substance: ACETAMINOPHEN
  17. GLUCOSAMINE [Concomitant]
     Active Substance: GLUCOSAMINE
     Dosage: UNK
     Dates: start: 2008
  18. TAZOCIN [Concomitant]
     Active Substance: PIPERACILLIN SODIUM\TAZOBACTAM SODIUM
  19. HEPARIN [Concomitant]
     Active Substance: HEPARIN SODIUM
  20. CEFTRIAXONE. [Concomitant]
     Active Substance: CEFTRIAXONE

REACTIONS (5)
  - Diarrhoea [Recovered/Resolved]
  - Volvulus [Recovered/Resolved]
  - Dehydration [Recovered/Resolved]
  - Hyperthyroidism [Not Recovered/Not Resolved]
  - Lethargy [Recovered/Resolved]

NARRATIVE: CASE EVENT DATE: 20140110
